FAERS Safety Report 7148393-9 (Version None)
Quarter: 2010Q4

REPORT INFORMATION
  Report Type: 
  Country: None (occurrence: None)
  Receive Date: 20101209
  Receipt Date: 20101129
  Transmission Date: 20110411
  Serious: Yes (Hospitalization, Other)
  Sender: FDA-Public Use
  Company Number: US-ELI_LILLY_AND_COMPANY-US201011000047

PATIENT
  Sex: Female

DRUGS (3)
  1. HUMALOG [Suspect]
     Indication: TYPE 2 DIABETES MELLITUS
     Dosage: 8 U, OTHER
     Dates: start: 20080101
  2. HUMALOG [Suspect]
     Dosage: 8 U, OTHER
     Dates: start: 20080101
  3. GLUCOPHAGE [Concomitant]

REACTIONS (5)
  - CARDIAC VALVE DISEASE [None]
  - CORONARY ARTERY OCCLUSION [None]
  - DYSPNOEA [None]
  - RENAL FAILURE CHRONIC [None]
  - STENT PLACEMENT [None]
